FAERS Safety Report 7638438-1 (Version None)
Quarter: 2011Q3

REPORT INFORMATION
  Report Type: 
  Country: None (occurrence: None)
  Receive Date: 20110727
  Receipt Date: 20110720
  Transmission Date: 20111222
  Serious: Yes (Other)
  Sender: FDA-Public Use
  Company Number: CA-ABBOTT-11P-028-0840814-00

PATIENT
  Sex: Female
  Weight: 63.56 kg

DRUGS (9)
  1. TELMISARTAN [Concomitant]
     Indication: BLOOD PRESSURE ABNORMAL
     Route: 048
     Dates: start: 20090101
  2. HUMIRA [Suspect]
     Indication: CROHN'S DISEASE
     Route: 058
     Dates: start: 20110426, end: 20110705
  3. PHARMA CAL D [Concomitant]
     Indication: VITAMIN SUPPLEMENTATION
     Dosage: 400 IU/ 500 MG , 2 IN 1 DAYS
     Route: 048
  4. RAN-PANTOPRAZOLE [Concomitant]
     Indication: GASTRIC DISORDER
     Route: 048
  5. APO-CITALOPRAM [Concomitant]
     Indication: ANTIDEPRESSANT THERAPY
     Route: 048
     Dates: start: 20080101
  6. LEVOTHYROXINE SODIUM [Concomitant]
     Indication: HYPOTHYROIDISM
     Route: 048
     Dates: start: 19950101
  7. PREGABALIN [Concomitant]
     Indication: RESTLESS LEGS SYNDROME
     Route: 048
     Dates: start: 20090101
  8. BUDESONIDE/FORMOTEROL [Concomitant]
     Indication: ASTHMA
     Route: 055
     Dates: start: 19900101
  9. IPRATROPIUM BROMIDE [Concomitant]
     Indication: ASTHMA
     Route: 055
     Dates: start: 20080101

REACTIONS (6)
  - PULMONARY HYPERTENSION [None]
  - LEFT VENTRICULAR FAILURE [None]
  - PULMONARY OEDEMA [None]
  - DYSPNOEA [None]
  - FATIGUE [None]
  - AORTIC CALCIFICATION [None]
